FAERS Safety Report 5523292-4 (Version None)
Quarter: 2007Q4

REPORT INFORMATION
  Report Type: 
  Country: None (occurrence: None)
  Receive Date: 20071121
  Receipt Date: 20071115
  Transmission Date: 20080405
  Serious: Yes (Other)
  Sender: FDA-Public Use
  Company Number: GB-AVENTIS-200720593GDDC

PATIENT
  Age: 74 Year
  Sex: Female

DRUGS (8)
  1. LEFLUNOMIDE [Suspect]
     Indication: RHEUMATOID ARTHRITIS
     Route: 048
     Dates: start: 20070719, end: 20070801
  2. AMLODIPINE [Concomitant]
  3. ATENOLOL [Concomitant]
  4. AZATHIOPRINE [Concomitant]
  5. OMEPRAZOLE [Concomitant]
  6. PREDNISOLONE [Concomitant]
     Dosage: DOSE: UNK
  7. RISEDRONATE SODIUM [Concomitant]
  8. SIMVASTATIN [Concomitant]
     Route: 048

REACTIONS (2)
  - HEPATOTOXICITY [None]
  - RASH [None]
